FAERS Safety Report 25011673 (Version 1)
Quarter: 2025Q1

REPORT INFORMATION
  Report Type: Spontaneous
  Country: GB (occurrence: GB)
  Receive Date: 20250226
  Receipt Date: 20250226
  Transmission Date: 20250408
  Serious: Yes (Other)
  Sender: CELLTRION
  Company Number: GB-CELLTRION INC.-2025GB005331

PATIENT

DRUGS (2)
  1. YUFLYMA [Suspect]
     Active Substance: ADALIMUMAB-AATY
     Indication: Psoriasis
     Route: 058
     Dates: start: 202409
  2. YUFLYMA [Suspect]
     Active Substance: ADALIMUMAB-AATY
     Route: 058

REACTIONS (3)
  - Appendicectomy [Unknown]
  - Intentional dose omission [Unknown]
  - Intentional overdose [Unknown]
